FAERS Safety Report 5387764-8 (Version None)
Quarter: 2007Q3

REPORT INFORMATION
  Report Type: 
  Country: None (occurrence: None)
  Receive Date: 20070716
  Receipt Date: 20070706
  Transmission Date: 20080115
  Serious: Yes (Other)
  Sender: FDA-Public Use
  Company Number: NL-JNJFOC-20070604128

PATIENT
  Sex: Male

DRUGS (4)
  1. TRISPORAL [Suspect]
     Indication: ONYCHOMYCOSIS
     Route: 048
  2. LEVOTHYROXINE SODIUM [Concomitant]
     Route: 048
  3. BUDESONIDE [Concomitant]
     Route: 065
  4. SIMVASTATIN [Concomitant]
     Route: 065

REACTIONS (2)
  - PALPITATIONS [None]
  - PYREXIA [None]
